FAERS Safety Report 16018238 (Version 2)
Quarter: 2019Q1

REPORT INFORMATION
  Report Type: Spontaneous
  Country: JP (occurrence: JP)
  Receive Date: 20190228
  Receipt Date: 20190304
  Transmission Date: 20190418
  Serious: Yes (Hospitalization)
  Sender: FDA-Public Use
  Company Number: JP-JNJFOC-20190229644

PATIENT
  Sex: Female

DRUGS (2)
  1. DUROTEP MT [Suspect]
     Active Substance: FENTANYL
     Indication: PAIN
     Dosage: 12.5 UG/HR AND 25 UG/HR
     Route: 062
  2. DUROTEP MT [Suspect]
     Active Substance: FENTANYL
     Indication: PAIN
     Route: 062

REACTIONS (3)
  - Decreased appetite [Unknown]
  - Inappropriate schedule of product administration [Unknown]
  - Off label use [Unknown]
